FAERS Safety Report 9359948 (Version 2)
Quarter: 2013Q4

REPORT INFORMATION
  Report Type: Spontaneous
  Country: US (occurrence: None)
  Receive Date: 20130608
  Receipt Date: 20131218
  Transmission Date: 20140711
  Serious: Yes (Other)
  Sender: FDA-Public Use
  Company Number: 2013CT000028

PATIENT
  Age: 61 Year
  Sex: Female
  Weight: 93.9 kg

DRUGS (10)
  1. KORLYM [Suspect]
     Indication: CUSHING^S SYNDROME
     Route: 048
     Dates: start: 201302
  2. SOMAVERT [Concomitant]
  3. SYNTHROID [Concomitant]
  4. BENICAR HCT [Concomitant]
  5. GLIMEPIRIDE [Concomitant]
  6. METFORMIN [Concomitant]
  7. PAROXETINE [Concomitant]
  8. LIPITOR [Concomitant]
  9. SPIRONOLACTONE [Concomitant]
  10. GLIMEPIRIDE [Suspect]
     Dates: start: 20131012

REACTIONS (2)
  - Oedema peripheral [None]
  - Pruritus generalised [None]
